FAERS Safety Report 24040167 (Version 1)
Quarter: 2024Q3

REPORT INFORMATION
  Report Type: Spontaneous
  Country: LT (occurrence: None)
  Receive Date: 20240702
  Receipt Date: 20240702
  Transmission Date: 20241017
  Serious: Yes (Hospitalization, Other)
  Sender: NATCO PHARMA
  Company Number: LT-NATCOUSA-2024-NATCOUSA-000214

PATIENT
  Age: 62 Year
  Sex: Female

DRUGS (1)
  1. NITROGLYCERIN [Suspect]
     Active Substance: NITROGLYCERIN
     Indication: Vasospasm
     Route: 022

REACTIONS (2)
  - Therapy partial responder [Unknown]
  - Product use in unapproved indication [Unknown]
